FAERS Safety Report 21724510 (Version 1)
Quarter: 2022Q4

REPORT INFORMATION
  Report Type: Spontaneous
  Country: US (occurrence: US)
  Receive Date: 20221213
  Receipt Date: 20221213
  Transmission Date: 20230113
  Serious: No
  Sender: FDA-Public Use
  Company Number: US-Dermavant-000189

PATIENT
  Age: 38 Year
  Sex: Female

DRUGS (2)
  1. TAPINAROF [Suspect]
     Active Substance: TAPINAROF
     Indication: Psoriasis
     Dosage: VTAMA CREAM 1% (DOSE UNSPECIFIED), ONCE DAILY
     Route: 061
     Dates: start: 20220914, end: 20220915
  2. TAPINAROF [Suspect]
     Active Substance: TAPINAROF
     Indication: Psoriasis
     Dosage: THE PATIENT USED UNSPECIFIED DOSE, ONCE DAILY ?EXPIRY DATE: 7L6C (NOV-2023) OR IF 4A6M (OCT-2023)
     Route: 061
     Dates: start: 20220914, end: 20220915

REACTIONS (2)
  - Rash [None]
  - Pruritus [None]

NARRATIVE: CASE EVENT DATE: 20220915
